FAERS Safety Report 5404314-8 (Version None)
Quarter: 2007Q3

REPORT INFORMATION
  Report Type: 
  Country: None (occurrence: None)
  Receive Date: 20070713
  Receipt Date: 20061024
  Transmission Date: 20080115
  Serious: Yes (Life-Threatening, Hospitalization)
  Sender: FDA-Public Use
  Company Number: REM_00289_2006

PATIENT
  Age: 63 Year
  Sex: Male
  Weight: 67 kg

DRUGS (11)
  1. REMODULIN [Suspect]
     Indication: PULMONARY HYPERTENSION
     Dosage: NG/KG/MIN CONTINUOUS SC
     Route: 058
     Dates: start: 20040201, end: 20060401
  2. REMODULIN [Suspect]
     Indication: PULMONARY HYPERTENSION
     Dosage: 100 NG/KG/MIN CONTINUOUS IV
     Route: 042
     Dates: start: 20060401
  3. TRACLEER [Concomitant]
  4. SILDENAFIL CITRATE [Concomitant]
  5. COUMADIN [Concomitant]
  6. LASIX [Concomitant]
  7. SYNTHROID [Concomitant]
  8. PROZAC [Concomitant]
  9. PREVACID [Concomitant]
  10. POTASSIUM CHLORIDE [Concomitant]
  11. OXYGEN [Concomitant]

REACTIONS (5)
  - CHILLS [None]
  - ENTEROBACTER SEPSIS [None]
  - FLUID OVERLOAD [None]
  - PYREXIA [None]
  - STAPHYLOCOCCAL INFECTION [None]
